FAERS Safety Report 12535613 (Version 1)
Quarter: 2016Q3

REPORT INFORMATION
  Report Type: Spontaneous
  Country: US (occurrence: None)
  Receive Date: 20160706
  Receipt Date: 20160706
  Transmission Date: 20161109
  Serious: Yes (Hospitalization)
  Sender: FDA-Public Use
  Company Number: None

PATIENT
  Age: 65 Year
  Sex: Male
  Weight: 78.9 kg

DRUGS (2)
  1. CISPLATIN. [Suspect]
     Active Substance: CISPLATIN
     Dates: end: 20160613
  2. GEMCITABINE HYDROCHLORIDE. [Suspect]
     Active Substance: GEMCITABINE HYDROCHLORIDE
     Dates: end: 20160613

REACTIONS (9)
  - Urinary tract infection [None]
  - Platelet count decreased [None]
  - Abdominal pain [None]
  - White blood cell count decreased [None]
  - Dehydration [None]
  - Anaemia [None]
  - Blood magnesium decreased [None]
  - Asthenia [None]
  - Blood potassium decreased [None]

NARRATIVE: CASE EVENT DATE: 20160617
